FAERS Safety Report 9198392 (Version 1)
Quarter: 2013Q1

REPORT INFORMATION
  Report Type: Spontaneous
  Country: FR (occurrence: None)
  Receive Date: 20130326
  Receipt Date: 20130326
  Transmission Date: 20140127
  Serious: Yes (Death, Life-Threatening, Hospitalization)
  Sender: FDA-Public Use
  Company Number: SYM-2013-02070

PATIENT
  Age: 83 Year
  Sex: Male

DRUGS (5)
  1. MONO TILDIEM LP [Suspect]
     Indication: HYPERTENSION
     Route: 048
     Dates: start: 2008, end: 20121224
  2. TRIATEC(RAMIPRIL) [Suspect]
     Indication: HYPERTENSION
     Route: 048
     Dates: start: 2008, end: 20121224
  3. PLAVIX [Suspect]
     Indication: THROMBOSIS PROPHYLAXIS
     Route: 048
     Dates: start: 2008, end: 20121224
  4. ANDROCUR [Suspect]
     Indication: PROSTATIC ADENOMA
     Route: 048
     Dates: start: 20120614, end: 20121219
  5. MIANSERINE [Suspect]
     Indication: PRODUCT USED FOR UNKNOWN INDICATION
     Route: 048
     Dates: start: 2008, end: 20121224

REACTIONS (2)
  - Hepatitis fulminant [None]
  - Hepatorenal failure [None]
